FAERS Safety Report 17517182 (Version 1)
Quarter: 2020Q1

REPORT INFORMATION
  Report Type: Spontaneous
  Country: US (occurrence: US)
  Receive Date: 20200307
  Receipt Date: 20200307
  Transmission Date: 20200409
  Serious: No
  Sender: FDA-Public Use
  Company Number: None

PATIENT
  Sex: Female
  Weight: 63 kg

DRUGS (11)
  1. MULTI-VITAMIN [Concomitant]
     Active Substance: .ALPHA.-TOCOPHEROL ACETATE, DL-\ASCORBIC ACID\CYANOCOBALAMIN\FLUORIDE ION\FOLIC ACID\NIACIN\PYRIDOXINE\RIBOFLAVIN\THIAMINE\VITAMIN A\VITAMIN D
  2. FLAXSEED [Concomitant]
     Active Substance: FLAX SEED
  3. MAGNESIUM [Concomitant]
     Active Substance: MAGNESIUM
  4. BUTALBITAL [Concomitant]
     Active Substance: BUTALBITAL
  5. FYAVOLV [Concomitant]
     Active Substance: ETHINYL ESTRADIOL\NORETHINDRONE ACETATE
  6. AJOVY [Suspect]
     Active Substance: FREMANEZUMAB-VFRM
     Indication: MIGRAINE
     Dosage: ?          QUANTITY:1 INJECTION(S);OTHER FREQUENCY:ONCE PER MONTH;OTHER ROUTE:INJECTION INTO THIGH?
     Dates: start: 20191101, end: 20200229
  7. CALCIUM [Concomitant]
     Active Substance: CALCIUM
  8. CRANBERRY. [Concomitant]
     Active Substance: CRANBERRY
  9. SUMATRIPTAN. [Concomitant]
     Active Substance: SUMATRIPTAN
  10. CALCITONIN [Concomitant]
     Active Substance: CALCITONIN
  11. VITAMIN D [Concomitant]
     Active Substance: VITAMIN D NOS

REACTIONS (1)
  - Migraine [None]
